FAERS Safety Report 4342486-7 (Version None)
Quarter: 2004Q2

REPORT INFORMATION
  Report Type: 
  Country: None (occurrence: None)
  Receive Date: 20040419
  Receipt Date: 20040419
  Transmission Date: 20050107
  Serious: Yes (Hospitalization)
  Sender: FDA-Public Use
  Company Number: None

PATIENT
  Age: 67 Year
  Sex: Female
  Weight: 61 kg

DRUGS (8)
  1. ZOCOR [Suspect]
     Dosage: 40 MG PO QD
     Route: 048
  2. DILTIAZEM [Concomitant]
  3. LEVOXYL [Concomitant]
  4. LASIX [Concomitant]
  5. DIGOXIN [Concomitant]
  6. COZAAR [Concomitant]
  7. COUMADIN [Concomitant]
  8. INSULIN [Concomitant]

REACTIONS (4)
  - ASTHENIA [None]
  - PNEUMONIA [None]
  - RENAL FAILURE [None]
  - RHABDOMYOLYSIS [None]
